FAERS Safety Report 12932317 (Version 1)
Quarter: 2016Q4

REPORT INFORMATION
  Report Type: Spontaneous
  Country: US (occurrence: US)
  Receive Date: 20161111
  Receipt Date: 20161111
  Transmission Date: 20170207
  Serious: Yes (Hospitalization, Other)
  Sender: FDA-Public Use
  Company Number: US-ZYDUS-012623

PATIENT
  Age: 15 Year
  Sex: Female

DRUGS (3)
  1. ZONISAMIDE. [Suspect]
     Active Substance: ZONISAMIDE
     Indication: AFFECTIVE DISORDER
     Route: 048
  2. FLUOXETINE [Concomitant]
     Active Substance: FLUOXETINE HYDROCHLORIDE
     Indication: AFFECTIVE DISORDER
     Route: 048
  3. SALICYLATES NOS [Concomitant]
     Active Substance: UNSPECIFIED INGREDIENT
     Indication: DYSPEPSIA
     Route: 065

REACTIONS (9)
  - Acidosis hyperchloraemic [Recovered/Resolved]
  - Electrocardiogram T wave amplitude decreased [Recovered/Resolved]
  - Intentional overdose [Recovered/Resolved]
  - Hypotension [Recovered/Resolved]
  - Electrocardiogram QT prolonged [Recovered/Resolved]
  - Depressed level of consciousness [Recovered/Resolved]
  - Mental status changes [Recovered/Resolved]
  - Coma [Recovered/Resolved]
  - Confusional state [Recovered/Resolved]
